FAERS Safety Report 14364778 (Version 3)
Quarter: 2018Q1

REPORT INFORMATION
  Report Type: Report from Study
  Country: US (occurrence: US)
  Receive Date: 20180108
  Receipt Date: 20180322
  Transmission Date: 20180509
  Serious: No
  Sender: FDA-Public Use
  Company Number: US-RETROPHIN, INC.-2017RTN00105

PATIENT
  Sex: Male
  Weight: 25.4 kg

DRUGS (6)
  1. CHOLBAM [Suspect]
     Active Substance: CHOLIC ACID
     Dosage: 250 MG, 1X/DAY AT NIGHT
     Route: 048
     Dates: start: 20170923
  2. ZOLOFT [Concomitant]
     Active Substance: SERTRALINE HYDROCHLORIDE
     Indication: ANXIETY
     Dosage: 5 MG, 1X/DAY AT NIGHT
     Route: 048
  3. CHOLBAM [Suspect]
     Active Substance: CHOLIC ACID
     Indication: XANTHOMATOSIS
     Dosage: 250 MG, 1X/DAY AT NIGHT
  4. CHOLIC ACID [Suspect]
     Active Substance: CHOLIC ACID
     Indication: XANTHOMATOSIS
     Dosage: 100 MG, 1X/DAY IN THE MORNING
     Dates: start: 201801
  5. CHOLIC ACID [Suspect]
     Active Substance: CHOLIC ACID
     Dosage: 50 MG, 2X/DAY
     Dates: end: 201801
  6. CHOLIC ACID [Suspect]
     Active Substance: CHOLIC ACID
     Dosage: 50 MG, 1X/DAY
     Route: 048
     Dates: start: 20170923

REACTIONS (5)
  - Nasopharyngitis [Recovered/Resolved]
  - Attention deficit/hyperactivity disorder [Not Recovered/Not Resolved]
  - Weight decreased [Not Recovered/Not Resolved]
  - Decreased appetite [Not Recovered/Not Resolved]
  - Vitamin D decreased [Not Recovered/Not Resolved]

NARRATIVE: CASE EVENT DATE: 2017
